FAERS Safety Report 8236038-6 (Version None)
Quarter: 2012Q1

REPORT INFORMATION
  Report Type: 
  Country: None (occurrence: None)
  Receive Date: 20120326
  Receipt Date: 20120320
  Transmission Date: 20120608
  Serious: Yes (Death, Disabling, Other)
  Sender: FDA-Public Use
  Company Number: PE-ASTRAZENECA-2012SE18948

PATIENT
  Age: 73 Year
  Sex: Female

DRUGS (1)
  1. ARIMIDEX [Suspect]
     Indication: BREAST CANCER
     Route: 048
     Dates: start: 20110901, end: 20120221

REACTIONS (4)
  - METASTASES TO SPINE [None]
  - QUADRIPLEGIA [None]
  - DYSPNOEA [None]
  - SPINAL FRACTURE [None]
